FAERS Safety Report 7217309-9 (Version None)
Quarter: 2011Q1

REPORT INFORMATION
  Report Type: 
  Country: None (occurrence: None)
  Receive Date: 20110110
  Receipt Date: 20101229
  Transmission Date: 20110831
  Serious: Yes (Life-Threatening, Other)
  Sender: FDA-Public Use
  Company Number: JP-SANOFI-AVENTIS-2009SA007009

PATIENT
  Age: 43 Year
  Sex: Female
  Weight: 60.8 kg

DRUGS (11)
  1. AVASTIN [Suspect]
     Indication: COLON CANCER METASTATIC
     Route: 041
     Dates: start: 20091028, end: 20091028
  2. FLUOROURACIL [Suspect]
     Route: 041
     Dates: start: 20091111, end: 20091111
  3. AVASTIN [Suspect]
     Route: 041
     Dates: start: 20091111, end: 20091111
  4. CALCIUM LEVOFOLINATE [Suspect]
     Route: 041
     Dates: start: 20091111, end: 20091111
  5. PARIET [Concomitant]
     Route: 065
     Dates: start: 20091009, end: 20091111
  6. FLUOROURACIL [Suspect]
     Indication: COLON CANCER METASTATIC
     Route: 041
     Dates: start: 20091028, end: 20091028
  7. DEXAMETHASONE [Concomitant]
     Route: 065
     Dates: start: 20091028, end: 20091111
  8. ELPLAT [Suspect]
     Indication: COLON CANCER METASTATIC
     Route: 041
     Dates: start: 20091028, end: 20091028
  9. ELPLAT [Suspect]
     Route: 041
     Dates: start: 20091111, end: 20091111
  10. CALCIUM LEVOFOLINATE [Suspect]
     Indication: COLON CANCER METASTATIC
     Route: 041
     Dates: start: 20091028, end: 20091028
  11. HYPEN [Concomitant]
     Route: 065
     Dates: start: 20091031, end: 20091111

REACTIONS (3)
  - GASTROINTESTINAL PERFORATION [None]
  - PERITONITIS [None]
  - EMBOLISM ARTERIAL [None]
